FAERS Safety Report 9904689 (Version 2)
Quarter: 2014Q1

REPORT INFORMATION
  Report Type: Report from Study
  Country: BE (occurrence: BE)
  Receive Date: 20140218
  Receipt Date: 20140301
  Transmission Date: 20141002
  Serious: Yes (Hospitalization)
  Sender: FDA-Public Use
  Company Number: BE-INCYTE CORPORATION-2014IN000378

PATIENT
  Age: 85 Year
  Sex: Female
  Weight: 66 kg

DRUGS (7)
  1. CINC424B2301 [Suspect]
     Indication: POLYCYTHAEMIA VERA
     Dosage: 5 MG, BID
     Route: 048
     Dates: start: 20130918
  2. ATENOLOL+ CLORTALIDONE [Concomitant]
     Dosage: UNK
  3. SYMBICORT [Concomitant]
     Dosage: UNK
  4. OTRIVINE [Concomitant]
     Dosage: UNK
  5. DUOVENT [Concomitant]
     Dosage: UNK
     Dates: start: 20130710
  6. CETIRIZINE [Concomitant]
     Dosage: UNK
  7. LOSARTAN [Concomitant]
     Dosage: UNK
     Dates: start: 20130906

REACTIONS (1)
  - Transient ischaemic attack [Not Recovered/Not Resolved]
